FAERS Safety Report 13376157 (Version 2)
Quarter: 2017Q2

REPORT INFORMATION
  Report Type: Spontaneous
  Country: US (occurrence: US)
  Receive Date: 20170328
  Receipt Date: 20170523
  Transmission Date: 20170830
  Serious: Yes (Other)
  Sender: FDA-Public Use
  Company Number: US-ASTRAZENECA-2017SE30346

PATIENT
  Age: 24347 Day
  Sex: Female
  Weight: 71.2 kg

DRUGS (4)
  1. BYDUREON [Suspect]
     Active Substance: EXENATIDE
     Indication: DIABETES MELLITUS
     Route: 058
     Dates: start: 2016
  2. MULTIVITAMINS [Concomitant]
     Active Substance: VITAMINS
  3. BABY ASPIRIN [Concomitant]
     Active Substance: ASPIRIN
     Indication: CATARACT
  4. VITAMIN D [Concomitant]
     Active Substance: CHOLECALCIFEROL

REACTIONS (4)
  - Retinal vascular occlusion [Recovering/Resolving]
  - Circumstance or information capable of leading to medication error [Unknown]
  - Blindness transient [Recovering/Resolving]
  - Device malfunction [Recovered/Resolved]

NARRATIVE: CASE EVENT DATE: 20170125
